FAERS Safety Report 5908077-9 (Version None)
Quarter: 2008Q4

REPORT INFORMATION
  Report Type: 
  Country: None (occurrence: None)
  Receive Date: 20081003
  Receipt Date: 20080924
  Transmission Date: 20090506
  Serious: Yes (Other)
  Sender: FDA-Public Use
  Company Number: FI-PFIZER INC-2008080661

PATIENT
  Sex: Female

DRUGS (1)
  1. CELEBRA [Suspect]
     Indication: POSTOPERATIVE CARE
     Route: 048
     Dates: start: 20020101, end: 20020101

REACTIONS (1)
  - CONFUSIONAL STATE [None]
